FAERS Safety Report 24418205 (Version 2)
Quarter: 2024Q4

REPORT INFORMATION
  Report Type: Spontaneous
  Country: FR (occurrence: FR)
  Receive Date: 20241009
  Receipt Date: 20241029
  Transmission Date: 20250115
  Serious: Yes (Other)
  Sender: NOVARTIS
  Company Number: FR-002147023-NVSC2024FR170382

PATIENT
  Age: 75 Year
  Sex: Female

DRUGS (3)
  1. BEOVU [Suspect]
     Active Substance: BROLUCIZUMAB-DBLL
     Indication: Neovascular age-related macular degeneration
     Dosage: 0.1 ML (EYE DROP)
     Route: 031
     Dates: start: 20240703
  2. BEOVU [Suspect]
     Active Substance: BROLUCIZUMAB-DBLL
     Dosage: 0.1 ML (EYE DROP)
     Route: 031
     Dates: start: 20240729
  3. EYLEA [Concomitant]
     Active Substance: AFLIBERCEPT
     Indication: Product used for unknown indication
     Dosage: UNK (10 INJECTION)
     Route: 065
     Dates: start: 202306, end: 202406

REACTIONS (5)
  - Vitreous disorder [Recovered/Resolved with Sequelae]
  - Vitreous floaters [Recovered/Resolved with Sequelae]
  - Keratic precipitates [Recovered/Resolved with Sequelae]
  - Retinal perivascular sheathing [Recovered/Resolved with Sequelae]
  - Eye inflammation [Not Recovered/Not Resolved]

NARRATIVE: CASE EVENT DATE: 20240730
